FAERS Safety Report 5446649-9 (Version None)
Quarter: 2007Q3

REPORT INFORMATION
  Report Type: 
  Country: None (occurrence: None)
  Receive Date: 20070907
  Receipt Date: 20070905
  Transmission Date: 20080115
  Serious: Yes (Hospitalization, Other)
  Sender: FDA-Public Use
  Company Number: US-SHR-US-2006-038574

PATIENT
  Age: 58 Year
  Sex: Female
  Weight: 49.887 kg

DRUGS (2)
  1. BETASERON [Suspect]
     Dosage: 8 MIU, EVERY 2D
     Route: 058
     Dates: start: 20020601, end: 20061101
  2. ASPIRIN [Concomitant]
     Dosage: 3 WITH SHOT, EVERY 2D
     Dates: start: 20060401, end: 20061101

REACTIONS (5)
  - ASTHENIA [None]
  - FALL [None]
  - MOBILITY DECREASED [None]
  - UPPER LIMB FRACTURE [None]
  - URINARY INCONTINENCE [None]
